FAERS Safety Report 26173407 (Version 1)
Quarter: 2025Q4

REPORT INFORMATION
  Report Type: Spontaneous
  Country: US (occurrence: US)
  Receive Date: 20251218
  Receipt Date: 20251218
  Transmission Date: 20260117
  Serious: Yes (Life-Threatening, Hospitalization)
  Sender: MICRO LABS LIMITED
  Company Number: US-MLMSERVICE-20251201-PI732940-00208-1

PATIENT
  Age: 43 Year
  Sex: Female

DRUGS (2)
  1. LOSARTAN [Suspect]
     Active Substance: LOSARTAN
     Indication: Product used for unknown indication
  2. LOSARTAN [Suspect]
     Active Substance: LOSARTAN

REACTIONS (1)
  - Thrombotic thrombocytopenic purpura [Recovering/Resolving]
